FAERS Safety Report 18272906 (Version 1)
Quarter: 2020Q3

REPORT INFORMATION
  Report Type: Spontaneous
  Country: PL (occurrence: PL)
  Receive Date: 20200916
  Receipt Date: 20200916
  Transmission Date: 20201103
  Serious: Yes (Other)
  Sender: FDA-Public Use
  Company Number: PL-BAXTER-2020BAX018586

PATIENT
  Age: 10 Year
  Sex: Female
  Weight: 38 kg

DRUGS (1)
  1. HOLOXAN [Suspect]
     Active Substance: IFOSFAMIDE
     Indication: LYMPHOCYTIC LEUKAEMIA
     Route: 042
     Dates: start: 20171130, end: 20171130

REACTIONS (9)
  - Wheezing [Recovered/Resolved]
  - Hyperhidrosis [Recovered/Resolved]
  - Swelling face [Recovered/Resolved]
  - Tachycardia [Recovered/Resolved]
  - Dyspnoea [Recovered/Resolved]
  - Throat irritation [Recovered/Resolved]
  - Cough [Recovered/Resolved]
  - Pallor [Recovered/Resolved]
  - Crepitations [Recovered/Resolved]

NARRATIVE: CASE EVENT DATE: 20171130
